FAERS Safety Report 8984197 (Version 2)
Quarter: 2013Q1

REPORT INFORMATION
  Report Type: Spontaneous
  Country: CA (occurrence: CA)
  Receive Date: 20121226
  Receipt Date: 20130219
  Transmission Date: 20140127
  Serious: Yes (Other)
  Sender: FDA-Public Use
  Company Number: PHHY2012CA118285

PATIENT
  Sex: Female

DRUGS (4)
  1. GLEEVEC [Suspect]
     Indication: CHRONIC MYELOID LEUKAEMIA
     Dosage: 400 MG, QD
     Route: 048
     Dates: start: 2006
  2. NEXIUM-MUPS//ESOMEPRAZOLE MAGNESIUM [Concomitant]
  3. ARTHROTEC [Concomitant]
     Indication: ARTHRALGIA
  4. DICETEL [Concomitant]
     Indication: IRRITABLE BOWEL SYNDROME

REACTIONS (11)
  - Infection [Recovered/Resolved]
  - Irritable bowel syndrome [Unknown]
  - Exposed bone in jaw [Unknown]
  - Plantar fasciitis [Unknown]
  - Limb injury [Unknown]
  - Arthralgia [Unknown]
  - Local swelling [Unknown]
  - Heart rate increased [Unknown]
  - Localised infection [Unknown]
  - Orbital oedema [Unknown]
  - Weight increased [Unknown]
